FAERS Safety Report 21815077 (Version 1)
Quarter: 2023Q1

REPORT INFORMATION
  Report Type: Spontaneous
  Country: BS (occurrence: US)
  Receive Date: 20230104
  Receipt Date: 20230104
  Transmission Date: 20230417
  Serious: No
  Sender: FDA-Public Use
  Company Number: BS-APOTEX-2022AP009890

PATIENT
  Age: 83 Year
  Sex: Male

DRUGS (1)
  1. CILOSTAZOL [Suspect]
     Active Substance: CILOSTAZOL
     Indication: Peripheral vascular disorder
     Dosage: 1 DOSAGE FORM, Q.12H (ONCE AT MIDNIGHT AND ONCE AT MIDDAY)
     Route: 048
     Dates: start: 20220403

REACTIONS (5)
  - Dysphonia [Not Recovered/Not Resolved]
  - Condition aggravated [Not Recovered/Not Resolved]
  - Impaired work ability [Not Recovered/Not Resolved]
  - Arthralgia [Unknown]
  - Constipation [Unknown]

NARRATIVE: CASE EVENT DATE: 20220401
